FAERS Safety Report 4501246-4 (Version None)
Quarter: 2004Q3

REPORT INFORMATION
  Report Type: 
  Country: None (occurrence: None)
  Receive Date: 20040927
  Receipt Date: 20040818
  Transmission Date: 20050211
  Serious: No
  Sender: FDA-Public Use
  Company Number: USA040875838

PATIENT
  Age: 15 Year
  Sex: Female
  Weight: 69 kg

DRUGS (1)
  1. STRATTERA [Suspect]
     Indication: ATTENTION DEFICIT/HYPERACTIVITY DISORDER
     Dosage: 60 MG DAY
     Dates: start: 20040801, end: 20040801

REACTIONS (4)
  - ACCIDENTAL OVERDOSE [None]
  - HEART RATE INCREASED [None]
  - MEDICATION ERROR [None]
  - MYDRIASIS [None]
